FAERS Safety Report 7360887-X (Version None)
Quarter: 2011Q1

REPORT INFORMATION
  Report Type: 
  Country: None (occurrence: None)
  Receive Date: 20110315
  Receipt Date: 20110315
  Transmission Date: 20110831
  Serious: Yes (Life-Threatening, Other)
  Sender: FDA-Public Use
  Company Number: None

PATIENT
  Sex: Male
  Weight: 69.8539 kg

DRUGS (1)
  1. MOTRIN [Suspect]
     Indication: TOOTHACHE
     Dosage: 500 MOTRIN
     Dates: start: 20091203, end: 20101029

REACTIONS (3)
  - JOINT SWELLING [None]
  - ABASIA [None]
  - TENDON DISORDER [None]
